FAERS Safety Report 7817104-3 (Version None)
Quarter: 2011Q4

REPORT INFORMATION
  Report Type: 
  Country: None (occurrence: None)
  Receive Date: 20111017
  Receipt Date: 20111010
  Transmission Date: 20120403
  Serious: Yes (Hospitalization)
  Sender: FDA-Public Use
  Company Number: US-UCBSA-033643

PATIENT
  Age: 39 Year
  Sex: Female

DRUGS (2)
  1. CIMZIA [Suspect]
     Indication: CROHN'S DISEASE
     Route: 058
     Dates: start: 20110321, end: 20110101
  2. IMURAN [Concomitant]
     Route: 048

REACTIONS (1)
  - URINARY BLADDER ABSCESS [None]
